FAERS Safety Report 14064869 (Version 2)
Quarter: 2017Q4

REPORT INFORMATION
  Report Type: Spontaneous
  Country: US (occurrence: US)
  Receive Date: 20171009
  Receipt Date: 20171030
  Transmission Date: 20180321
  Serious: Yes (Hospitalization)
  Sender: FDA-Public Use
  Company Number: US-MALLINCKRODT-T201703762

PATIENT
  Age: 62 Year
  Sex: Female
  Weight: 114 kg

DRUGS (14)
  1. H.P. ACTHAR [Suspect]
     Active Substance: CORTICOTROPIN
     Indication: CHRONIC KIDNEY DISEASE
     Dosage: 80 MG, TWICE A WEEK
     Route: 058
  2. ZOFRAN [Concomitant]
     Active Substance: ONDANSETRON HYDROCHLORIDE
     Indication: NAUSEA
     Dosage: 8 MG
  3. CYCLOSPORINE. [Concomitant]
     Active Substance: CYCLOSPORINE
     Indication: FOCAL SEGMENTAL GLOMERULOSCLEROSIS
     Dosage: 25MG, ONCE DAILY
  4. DEXILANT [Concomitant]
     Active Substance: DEXLANSOPRAZOLE
     Indication: GASTROOESOPHAGEAL REFLUX DISEASE
     Dosage: 60 MG
  5. PREDNISONE. [Concomitant]
     Active Substance: PREDNISONE
     Indication: FOCAL SEGMENTAL GLOMERULOSCLEROSIS
     Dosage: 20 MG TWICE  A DAY
  6. ATENOLOL. [Concomitant]
     Active Substance: ATENOLOL
     Indication: HYPERTENSION
     Dosage: 25MG, THRICE IN A DAY
  7. METOLAZONE. [Concomitant]
     Active Substance: METOLAZONE
     Indication: OEDEMA
     Dosage: 5 MG, TWICE A DAY
  8. ATENOLOL. [Concomitant]
     Active Substance: ATENOLOL
     Dosage: 25 MG EVERY DAY
  9. LOSARTAN. [Concomitant]
     Active Substance: LOSARTAN
     Indication: HYPERTENSION
     Dosage: 100 MG
  10. HYDRALAZINE [Concomitant]
     Active Substance: HYDRALAZINE HYDROCHLORIDE
     Indication: HYPERTENSION
     Dosage: 25 MG, TRICE IN A DAY
  11. MICARDIS [Concomitant]
     Active Substance: TELMISARTAN
     Indication: HYPERTENSION
     Dosage: 80 MG ONCE A DAY
  12. H.P. ACTHAR [Suspect]
     Active Substance: CORTICOTROPIN
     Indication: FOCAL SEGMENTAL GLOMERULOSCLEROSIS
  13. LYRICA [Concomitant]
     Active Substance: PREGABALIN
     Indication: NEUROPATHY PERIPHERAL
     Dosage: 75 MG, TWICE A DAY
  14. LASIX [Concomitant]
     Active Substance: FUROSEMIDE
     Indication: OEDEMA
     Dosage: 80 MG, TWICE ADAY

REACTIONS (1)
  - Dyspnoea [Recovered/Resolved]

NARRATIVE: CASE EVENT DATE: 20170903
